FAERS Safety Report 13440985 (Version 2)
Quarter: 2017Q2

REPORT INFORMATION
  Report Type: Report from Study
  Country: US (occurrence: US)
  Receive Date: 20170413
  Receipt Date: 20170501
  Transmission Date: 20170830
  Serious: Yes (Death)
  Sender: FDA-Public Use
  Company Number: US-TAIHO ONCOLOGY INC-EU-2017-00280

PATIENT
  Sex: Male
  Weight: 81.72 kg

DRUGS (12)
  1. DILTIAZEM. [Concomitant]
     Active Substance: DILTIAZEM
     Dosage: NI
  2. AMBIEN [Concomitant]
     Active Substance: ZOLPIDEM TARTRATE
     Dosage: NI
  3. PERCOCET [Concomitant]
     Active Substance: ACETAMINOPHEN\OXYCODONE HYDROCHLORIDE
  4. PAXIL [Concomitant]
     Active Substance: PAROXETINE HYDROCHLORIDE
     Dosage: NI
  5. XANAX [Concomitant]
     Active Substance: ALPRAZOLAM
     Indication: SLEEP DISORDER
  6. RAPAFLO [Concomitant]
     Active Substance: SILODOSIN
     Dosage: NI
  7. LONSURF [Suspect]
     Active Substance: TIPIRACIL HYDROCHLORIDE\TRIFLURIDINE
     Indication: COLORECTAL CANCER
     Dosage: CYCLE 2 STARTED 13FEB2017
     Route: 048
     Dates: start: 20170116
  8. SYNTHROID [Concomitant]
     Active Substance: LEVOTHYROXINE SODIUM
     Dosage: NI
  9. ZOFRAN [Concomitant]
     Active Substance: ONDANSETRON HYDROCHLORIDE
     Dosage: NI
  10. FLOMAX [Concomitant]
     Active Substance: TAMSULOSIN HYDROCHLORIDE
     Dosage: NI
  11. LISINOPRIL. [Concomitant]
     Active Substance: LISINOPRIL
     Dosage: NI
  12. MEDROL [Concomitant]
     Active Substance: METHYLPREDNISOLONE
     Dosage: NI

REACTIONS (4)
  - Dry mouth [Unknown]
  - Vomiting [Recovered/Resolved]
  - Disease progression [Fatal]
  - Nausea [Unknown]

NARRATIVE: CASE EVENT DATE: 2017
